FAERS Safety Report 5147970-4 (Version None)
Quarter: 2006Q4

REPORT INFORMATION
  Report Type: 
  Country: None (occurrence: None)
  Receive Date: 20061110
  Receipt Date: 20061003
  Transmission Date: 20070319
  Serious: Yes (Death, Hospitalization)
  Sender: FDA-Public Use
  Company Number: DE-MERCK-0610DEU00004

PATIENT
  Age: 64 Year
  Sex: Female

DRUGS (3)
  1. ZOCOR [Suspect]
     Indication: HYPERLIPIDAEMIA
     Route: 048
  2. CYCLOSPORINE [Suspect]
     Indication: RENAL TRANSPLANT
     Route: 065
  3. [THERAPY UNSPECIFIED] [Concomitant]
     Indication: RENAL TRANSPLANT
     Route: 065

REACTIONS (5)
  - CARDIAC FAILURE [None]
  - DIALYSIS [None]
  - DRUG INTERACTION [None]
  - RENAL DISORDER [None]
  - RHABDOMYOLYSIS [None]
